FAERS Safety Report 10784423 (Version 1)
Quarter: 2015Q1

REPORT INFORMATION
  Report Type: Spontaneous
  Country: US (occurrence: None)
  Receive Date: 20150209
  Receipt Date: 20150209
  Transmission Date: 20150721
  Serious: No
  Sender: FDA-Public Use
  Company Number: None

PATIENT
  Age: 32 Year
  Sex: Female
  Weight: 65.77 kg

DRUGS (1)
  1. METRONIDAZOLE. [Suspect]
     Active Substance: METRONIDAZOLE
     Indication: BACTERIAL VAGINOSIS
     Dosage: 1 PILL TWICE DAILY TAKEN BY MOUTH
     Route: 048
     Dates: start: 20150129, end: 20150206

REACTIONS (6)
  - Visual impairment [None]
  - Irritability [None]
  - Rash pruritic [None]
  - Dizziness [None]
  - Asthenia [None]
  - Erythema [None]

NARRATIVE: CASE EVENT DATE: 20150208
